FAERS Safety Report 23504218 (Version 4)
Quarter: 2025Q2

REPORT INFORMATION
  Report Type: Report from Study
  Country: JP (occurrence: JP)
  Receive Date: 20240209
  Receipt Date: 20250407
  Transmission Date: 20250717
  Serious: Yes (Life-Threatening, Other)
  Sender: GLAXOSMITHKLINE
  Company Number: JP-GLAXOSMITHKLINE-JP2024JPN015758

PATIENT

DRUGS (32)
  1. MEPOLIZUMAB [Suspect]
     Active Substance: MEPOLIZUMAB
     Indication: Eosinophilic granulomatosis with polyangiitis
     Dosage: 300 MG, Q4W
     Dates: start: 20190805, end: 20191029
  2. MEPOLIZUMAB [Suspect]
     Active Substance: MEPOLIZUMAB
     Dosage: 100 MG, Q8W
     Dates: start: 20191224, end: 20191224
  3. MEPOLIZUMAB [Suspect]
     Active Substance: MEPOLIZUMAB
     Dates: start: 20200512, end: 20200512
  4. MEPOLIZUMAB [Suspect]
     Active Substance: MEPOLIZUMAB
     Dosage: 100 MG, Q4W
     Dates: start: 20200616, end: 20200929
  5. MEPOLIZUMAB [Suspect]
     Active Substance: MEPOLIZUMAB
     Dosage: 100 MG, Q6W
     Dates: start: 20201110, end: 20221222
  6. MEPOLIZUMAB [Suspect]
     Active Substance: MEPOLIZUMAB
     Dates: start: 20210208, end: 20210208
  7. MEPOLIZUMAB [Suspect]
     Active Substance: MEPOLIZUMAB
     Dosage: 100 MG, Q5W
     Dates: start: 20210317, end: 20210317
  8. MEPOLIZUMAB [Suspect]
     Active Substance: MEPOLIZUMAB
     Dates: start: 20210803, end: 20210803
  9. MEPOLIZUMAB [Suspect]
     Active Substance: MEPOLIZUMAB
     Dosage: 100 MG, Q8W
     Dates: start: 20210928, end: 20210928
  10. MEPOLIZUMAB [Suspect]
     Active Substance: MEPOLIZUMAB
     Dates: start: 20211116, end: 20211116
  11. MEPOLIZUMAB [Suspect]
     Active Substance: MEPOLIZUMAB
     Dosage: 100 MG, Q8W
     Dates: start: 20220111, end: 20220111
  12. MEPOLIZUMAB [Suspect]
     Active Substance: MEPOLIZUMAB
     Dates: start: 20220315, end: 20220315
  13. MEPOLIZUMAB [Suspect]
     Active Substance: MEPOLIZUMAB
     Dates: start: 20230627, end: 20230627
  14. PREDONINE [Concomitant]
     Active Substance: PREDNISOLONE
     Indication: Eosinophilic granulomatosis with polyangiitis
     Dosage: 5 MG, QD
     Route: 048
     Dates: end: 20190729
  15. PREDONINE [Concomitant]
     Active Substance: PREDNISOLONE
     Dosage: 25 MG, QD
     Route: 048
     Dates: start: 20190730, end: 20190804
  16. PREDONINE [Concomitant]
     Active Substance: PREDNISOLONE
     Dosage: 20 MG, QD
     Route: 048
     Dates: start: 20190805, end: 20190807
  17. PREDONINE [Concomitant]
     Active Substance: PREDNISOLONE
     Dosage: 15 MG, QD
     Route: 048
     Dates: start: 20190808, end: 20190811
  18. PREDONINE [Concomitant]
     Active Substance: PREDNISOLONE
     Dosage: 10 MG, QD
     Route: 048
     Dates: start: 20190812, end: 20190818
  19. PREDONINE [Concomitant]
     Active Substance: PREDNISOLONE
     Dosage: 9 MG, QD
     Route: 048
     Dates: start: 20190819, end: 20190902
  20. PREDONINE [Concomitant]
     Active Substance: PREDNISOLONE
     Dosage: 7 MG, QD
     Route: 048
     Dates: start: 20190903, end: 20190917
  21. PREDONINE [Concomitant]
     Active Substance: PREDNISOLONE
     Dosage: 5 MG, QD
     Route: 048
     Dates: start: 20190918, end: 20190930
  22. PREDONINE [Concomitant]
     Active Substance: PREDNISOLONE
     Dosage: 3 MG, QD
     Route: 048
     Dates: start: 20191001, end: 20191015
  23. PREDONINE [Concomitant]
     Active Substance: PREDNISOLONE
     Dosage: 2 MG, QD
     Route: 048
     Dates: start: 20191016, end: 20191029
  24. PREDONINE [Concomitant]
     Active Substance: PREDNISOLONE
     Dosage: 1 MG, QD
     Route: 048
     Dates: start: 20191030, end: 20191112
  25. PREDONINE [Concomitant]
     Active Substance: PREDNISOLONE
     Dosage: 1 MG, QOD, EOD
     Route: 048
     Dates: start: 20191113
  26. SYMBICORT [Concomitant]
     Active Substance: BUDESONIDE\FORMOTEROL FUMARATE DIHYDRATE
     Dosage: 3 DF, BID
     Route: 055
  27. THEO-DUR [Concomitant]
     Active Substance: THEOPHYLLINE ANHYDROUS
     Dosage: 100 MG, QD
  28. THEO-DUR [Concomitant]
     Active Substance: THEOPHYLLINE ANHYDROUS
     Dosage: 200 MG, QD
     Dates: end: 20210630
  29. MIZORIBINE [Concomitant]
     Active Substance: MIZORIBINE
     Indication: Eosinophilic granulomatosis with polyangiitis
     Dosage: 100 MG, QD
     Dates: end: 20190804
  30. SUPLATAST TOSILATE [Concomitant]
     Active Substance: SUPLATAST TOSILATE
     Indication: Eosinophilic granulomatosis with polyangiitis
  31. BILASTINE [Concomitant]
     Active Substance: BILASTINE
     Indication: Eosinophilic granulomatosis with polyangiitis
  32. BILASTINE [Concomitant]
     Active Substance: BILASTINE
     Indication: Asthma

REACTIONS (3)
  - Asthenia [Recovered/Resolved]
  - Bladder cancer [Recovering/Resolving]
  - Nausea [Recovering/Resolving]

NARRATIVE: CASE EVENT DATE: 20191029
